FAERS Safety Report 21850391 (Version 1)
Quarter: 2023Q1

REPORT INFORMATION
  Report Type: Spontaneous
  Country: US (occurrence: None)
  Receive Date: 20230111
  Receipt Date: 20230111
  Transmission Date: 20230418
  Serious: Yes (Other)
  Sender: FDA-Public Use
  Company Number: None

PATIENT
  Age: 16 Year
  Sex: Female

DRUGS (1)
  1. PALFORZIA [Suspect]
     Active Substance: PEANUT
     Dosage: FREQUENCY : DAILY;?
     Route: 048
     Dates: start: 20221214, end: 20230111

REACTIONS (5)
  - Palpitations [None]
  - Tachycardia [None]
  - Early satiety [None]
  - Dysphagia [None]
  - Eosinophilic oesophagitis [None]

NARRATIVE: CASE EVENT DATE: 20230111
